FAERS Safety Report 9879215 (Version 1)
Quarter: 2014Q1

REPORT INFORMATION
  Report Type: Spontaneous
  Country: None (occurrence: US)
  Receive Date: 20140206
  Receipt Date: 20140206
  Transmission Date: 20141002
  Serious: No
  Sender: FDA-Public Use
  Company Number: US-ALLERGAN-1314190US

PATIENT
  Age: 3 Year
  Sex: Female

DRUGS (3)
  1. BOTOX [Suspect]
     Indication: CONGENITAL TORTICOLLIS
     Dosage: 40 UNK, UNK
     Route: 030
  2. BOTOX [Suspect]
     Dosage: 100 UNITS, SINGLE
     Route: 030
  3. LAXATIVE [Concomitant]
     Indication: CONSTIPATION

REACTIONS (6)
  - Musculoskeletal disorder [Unknown]
  - Posture abnormal [Unknown]
  - Pain [Unknown]
  - Pain [Unknown]
  - Asthenia [Unknown]
  - Off label use [Unknown]
